FAERS Safety Report 12642510 (Version 1)
Quarter: 2016Q3

REPORT INFORMATION
  Report Type: Spontaneous
  Country: US (occurrence: US)
  Receive Date: 20160810
  Receipt Date: 20160810
  Transmission Date: 20161109
  Serious: No
  Sender: FDA-Public Use
  Company Number: US-009507513-1607USA008322

PATIENT
  Age: 64 Year
  Sex: Female

DRUGS (2)
  1. INTRON A [Suspect]
     Active Substance: INTERFERON ALFA-2B
     Dosage: INCREASE DOSE BY 1MIU EVERY MONTH
     Route: 058
  2. INTRON A [Suspect]
     Active Substance: INTERFERON ALFA-2B
     Indication: PLASMACYTOMA
     Dosage: 1 MILLION IU, 3 TIMES WEEKLY FOR 4 WEEKS
     Route: 058

REACTIONS (2)
  - Pain [Unknown]
  - Nasopharyngitis [Unknown]
